FAERS Safety Report 4691633-6 (Version None)
Quarter: 2005Q2

REPORT INFORMATION
  Report Type: 
  Country: None (occurrence: None)
  Receive Date: 20050616
  Receipt Date: 20050608
  Transmission Date: 20051028
  Serious: Yes (Other)
  Sender: FDA-Public Use
  Company Number: US-JNJFOC-20050602771

PATIENT
  Sex: Female

DRUGS (11)
  1. REMICADE [Suspect]
     Indication: CROHN'S DISEASE
     Route: 042
  2. BENTYL [Concomitant]
  3. PROTONIX [Concomitant]
  4. PENTASA [Concomitant]
  5. VALIUM [Concomitant]
  6. ULTRAM [Concomitant]
     Indication: DRUG USE FOR UNKNOWN INDICATION
  7. ORAL CONTRACEPTIVE NOS [Concomitant]
     Route: 049
  8. SUCRALFATE [Concomitant]
  9. 6MP [Concomitant]
  10. CALCIUM GLUCONATE [Concomitant]
  11. VITAMINS [Concomitant]

REACTIONS (3)
  - MENSTRUATION IRREGULAR [None]
  - SUNBURN [None]
  - THYROID NEOPLASM [None]
